FAERS Safety Report 7758198 (Version 2)
Quarter: 2013Q3

REPORT INFORMATION
  Report Type: Spontaneous
  Country: US (occurrence: US)
  Receive Date: 20110112
  Receipt Date: 20130723
  Transmission Date: 20140515
  Serious: Yes (Other)
  Sender: FDA-Public Use
  Company Number: US-ALLERGAN-1004011US

PATIENT
  Age: 76 Year
  Sex: Female

DRUGS (3)
  1. RESTASIS? [Suspect]
     Indication: PRODUCT USED FOR UNKNOWN INDICATION
     Route: 047
  2. XALATAN 0.005% [Concomitant]
  3. SYSTANE [Concomitant]
     Indication: PRODUCT USED FOR UNKNOWN INDICATION

REACTIONS (11)
  - Age-related macular degeneration [Unknown]
  - Eye haemorrhage [Unknown]
  - Blood uric acid increased [Recovered/Resolved]
  - Poor quality sleep [Unknown]
  - Hot flush [Recovered/Resolved]
  - Feeling cold [Recovered/Resolved]
  - Eye irritation [Unknown]
  - Eye pain [Unknown]
  - Vision blurred [Unknown]
  - Ocular hyperaemia [Unknown]
  - Eye pain [Unknown]
